FAERS Safety Report 9388628 (Version 1)
Quarter: 2013Q3

REPORT INFORMATION
  Report Type: Spontaneous
  Country: GB (occurrence: GB)
  Receive Date: 20130708
  Receipt Date: 20130708
  Transmission Date: 20140515
  Serious: Yes (Life-Threatening, Hospitalization)
  Sender: FDA-Public Use
  Company Number: GB-TEVA-321593ISR

PATIENT
  Age: 42 Year
  Sex: Female
  Weight: 94.1 kg

DRUGS (12)
  1. RANITIDINE [Suspect]
     Dosage: 150 UNK
  2. VICTOZA [Suspect]
     Indication: TYPE 2 DIABETES MELLITUS
     Dosage: 1.2 MILLIGRAM DAILY; 1.2 MG, QD
     Dates: start: 20111122, end: 20111226
  3. METHOTREXATE [Concomitant]
     Dosage: 20 MG, UNK
  4. AMITRIPTYLINE [Concomitant]
     Dosage: 50 UNK, UNK
  5. DIHYDROCODEINE [Concomitant]
  6. ETORICOXIB [Concomitant]
     Dosage: 1 DOSAGE FORMS DAILY; 1 TAB, QD
  7. KAPAKE [Concomitant]
  8. MEBEVERINE [Concomitant]
     Dosage: 3 DOSAGE FORMS DAILY; 1 TAB, TID
  9. FOLIC ACID [Concomitant]
     Dosage: 5 MG, UNK
  10. RAMIPRIL [Concomitant]
     Dosage: 10 MILLIGRAM DAILY; 10 MG, QD
  11. METFORMIN [Concomitant]
     Dosage: 1000 MILLIGRAM DAILY; 1000 MG, QD
  12. GLIMEPIRID [Concomitant]
     Dosage: 2 MILLIGRAM DAILY; 2 MG, QD

REACTIONS (1)
  - Pancreatitis acute [Recovered/Resolved]
